FAERS Safety Report 13793501 (Version 2)
Quarter: 2017Q3

REPORT INFORMATION
  Report Type: Spontaneous
  Country: GB (occurrence: GB)
  Receive Date: 20170726
  Receipt Date: 20170731
  Transmission Date: 20171127
  Serious: Yes (Other)
  Sender: FDA-Public Use
  Company Number: GB-AMGEN-GBRSP2017111058

PATIENT
  Age: 52 Year
  Sex: Male

DRUGS (1)
  1. ENBREL [Suspect]
     Active Substance: ETANERCEPT
     Indication: PRODUCT USED FOR UNKNOWN INDICATION
     Dosage: 50 MG, WEEKLY
     Route: 058
     Dates: end: 201707

REACTIONS (4)
  - Hemiparesis [Unknown]
  - Cerebrovascular accident [Unknown]
  - Blindness [Unknown]
  - Memory impairment [Unknown]

NARRATIVE: CASE EVENT DATE: 201611
